FAERS Safety Report 14073549 (Version 3)
Quarter: 2017Q4

REPORT INFORMATION
  Report Type: Spontaneous
  Country: ES (occurrence: ES)
  Receive Date: 20171011
  Receipt Date: 20171124
  Transmission Date: 20180321
  Serious: Yes (Life-Threatening, Hospitalization)
  Sender: FDA-Public Use
  Company Number: ES-BEH-2017084256

PATIENT
  Age: 30 Year
  Sex: Male
  Weight: 84.1 kg

DRUGS (4)
  1. PRIVIGEN [Suspect]
     Active Substance: HUMAN IMMUNOGLOBULIN G
     Indication: MYASTHENIA GRAVIS
     Dosage: 150 G, TOT, INITIALLY 30G ON 5 DAYS
     Route: 042
     Dates: start: 20170606, end: 20170611
  2. PIRIDOSTIGMINA [Concomitant]
     Indication: MYASTHENIA GRAVIS
     Dosage: 240 MG, QD, 60MG/6H
     Route: 048
     Dates: start: 20170604, end: 20170803
  3. BEMIPARIN [Concomitant]
     Indication: IMMUNOGLOBULIN THERAPY
  4. BEMIPARIN [Concomitant]
     Indication: THROMBOSIS PROPHYLAXIS
     Dosage: 2500 DF, UNK
     Route: 058
     Dates: start: 20170606, end: 20170611

REACTIONS (1)
  - Pulmonary embolism [Recovered/Resolved]

NARRATIVE: CASE EVENT DATE: 20170612
